FAERS Safety Report 8556636 (Version 3)
Quarter: 2013Q2

REPORT INFORMATION
  Report Type: Spontaneous
  Country: US (occurrence: US)
  Receive Date: 20120510
  Receipt Date: 20130404
  Transmission Date: 20140414
  Serious: Yes (Other)
  Sender: FDA-Public Use
  Company Number: US-ASTRAZENECA-2011SE56452

PATIENT
  Age: 35 Year
  Sex: Female
  Weight: 90.7 kg

DRUGS (16)
  1. ATENOLOL [Suspect]
     Route: 048
  2. ATENOLOL [Suspect]
     Route: 048
  3. INDERAL [Suspect]
  4. SEROQUEL [Suspect]
     Indication: BIPOLAR I DISORDER
     Route: 048
     Dates: start: 1998
  5. SEROQUEL [Suspect]
     Indication: BIPOLAR DISORDER
     Route: 048
     Dates: start: 1998
  6. XANAX [Concomitant]
     Indication: ANXIETY
  7. XANAX [Concomitant]
     Indication: PANIC ATTACK
  8. LYRICA [Concomitant]
     Dates: start: 2006
  9. ELAVIL [Concomitant]
  10. AMBIEN [Concomitant]
  11. MAXZIDE [Concomitant]
  12. MAGNESIUM [Concomitant]
  13. ALBUTEROL [Concomitant]
  14. ADVAIR [Concomitant]
     Indication: ASTHMA
  15. VOLTAREN [Concomitant]
     Indication: ARTHRALGIA
  16. VOLTAREN [Concomitant]
     Indication: BACK PAIN

REACTIONS (29)
  - Myocardial infarction [Unknown]
  - Ventricular tachycardia [Unknown]
  - Pharyngitis streptococcal [Unknown]
  - Weight fluctuation [Unknown]
  - Stress [Unknown]
  - Panic attack [Unknown]
  - Cardiac disorder [Unknown]
  - Activities of daily living impaired [Unknown]
  - Sinus tachycardia [Unknown]
  - Speech disorder [Unknown]
  - Cold sweat [Unknown]
  - Tunnel vision [Unknown]
  - Chest pain [Unknown]
  - Social avoidant behaviour [Unknown]
  - Local swelling [Unknown]
  - Local swelling [Unknown]
  - Local swelling [Unknown]
  - Alopecia [Unknown]
  - Emotional disorder [Unknown]
  - Memory impairment [Unknown]
  - Crying [Unknown]
  - Fatigue [Unknown]
  - Affect lability [Unknown]
  - Hypoaesthesia [Unknown]
  - Dizziness [Unknown]
  - Depression [Unknown]
  - Anxiety [Unknown]
  - Pneumonia [Unknown]
  - Intentional drug misuse [Unknown]
